FAERS Safety Report 8559608-4 (Version None)
Quarter: 2012Q3

REPORT INFORMATION
  Report Type: 
  Country: None (occurrence: None)
  Receive Date: 20120727
  Receipt Date: 20120727
  Transmission Date: 20120928
  Serious: Yes (Hospitalization)
  Sender: FDA-Public Use
  Company Number: None

PATIENT
  Age: 81 Year
  Sex: Male
  Weight: 79.5 kg

DRUGS (7)
  1. ARICEPT [Concomitant]
  2. M.V.I. [Concomitant]
  3. OLMESARTAN MEDOXOMIL [Concomitant]
  4. WARFARIN SODIUM [Suspect]
     Indication: ATRIAL FIBRILLATION
     Dosage: 5MG / 2.5MG   MWF/SSTTH PO  CHRONIC
     Route: 048
  5. VIT D3 [Concomitant]
  6. ASPIRIN [Suspect]
     Indication: ATRIAL FIBRILLATION
     Dosage: 81MG DAILY PO CHRONIC
     Route: 048
  7. NAMENDA [Concomitant]

REACTIONS (2)
  - DIVERTICULUM [None]
  - LOWER GASTROINTESTINAL HAEMORRHAGE [None]
